FAERS Safety Report 22522449 (Version 4)
Quarter: 2023Q2

REPORT INFORMATION
  Report Type: Report from Study
  Country: RU (occurrence: RU)
  Receive Date: 20230605
  Receipt Date: 20230623
  Transmission Date: 20230721
  Serious: Yes (Life-Threatening, Hospitalization, Other)
  Sender: FDA-Public Use
  Company Number: RU-002147023-NVSC2023RU126326

PATIENT
  Age: 23 Month
  Sex: Female
  Weight: 14.5 kg

DRUGS (20)
  1. ZOLGENSMA [Suspect]
     Active Substance: ONASEMNOGENE ABEPARVOVEC-XIOI
     Indication: Spinal muscular atrophy
     Dosage: 58.1 ML, ONCE/SINGLE
     Route: 041
     Dates: start: 20220427, end: 20220427
  2. PREDNISOLONE [Concomitant]
     Active Substance: PREDNISOLONE
     Indication: Product used for unknown indication
     Dosage: 12.5 MG
     Route: 065
  3. PREDNISOLONE [Concomitant]
     Active Substance: PREDNISOLONE
     Dosage: 4.5 DOSAGE FORM (22.5 MG PER DAY) (WITH A GRADUAL DOSE REDUCTION EVERY WEEK BY 1/4 TABLET)
     Route: 065
     Dates: start: 20220604
  4. PREDNISOLONE [Concomitant]
     Active Substance: PREDNISOLONE
     Dosage: 17.5 MG, QD (DOSE PER DAY WITH A GRADUAL DECREASE (1/4 TABLET PER WEEK))
     Route: 065
     Dates: start: 20220727
  5. PREDNISOLONE [Concomitant]
     Active Substance: PREDNISOLONE
     Dosage: UNK (? TABLET A DAY UNTIL NEXT THURSDAY, THEN IT WILL BE DISCONTINUED)
     Route: 065
  6. PREDNISOLONE [Concomitant]
     Active Substance: PREDNISOLONE
     Dosage: 2 MG/KG
     Route: 065
  7. PREDNISOLONE [Concomitant]
     Active Substance: PREDNISOLONE
     Dosage: 12.5 MG, QD
     Route: 048
     Dates: start: 20230406, end: 20230412
  8. PREDNISOLONE [Concomitant]
     Active Substance: PREDNISOLONE
     Dosage: 10 MG, QD (MORNING)
     Route: 048
     Dates: start: 20230413, end: 20230419
  9. PREDNISOLONE [Concomitant]
     Active Substance: PREDNISOLONE
     Dosage: 12.5 MG
     Route: 065
     Dates: start: 202212, end: 20230525
  10. VITAMIN D NOS [Concomitant]
     Active Substance: VITAMIN D NOS
     Indication: Product used for unknown indication
     Dosage: 1500 IU
     Route: 065
  11. VITAMIN D NOS [Concomitant]
     Active Substance: VITAMIN D NOS
     Dosage: 2500 IU
     Route: 065
  12. URSODIOL [Concomitant]
     Active Substance: URSODIOL
     Indication: Product used for unknown indication
     Dosage: 5 ML, QD (PRESCRIBED FOR 3 MONTHS)
     Route: 065
     Dates: start: 20230415
  13. POLYETHYLENE GLYCOLS [Concomitant]
     Active Substance: POLYETHYLENE GLYCOLS
     Indication: Constipation
     Dosage: UNK
     Route: 065
  14. ATROVENT [Concomitant]
     Active Substance: IPRATROPIUM BROMIDE
     Indication: Product used for unknown indication
     Dosage: UNK (8-10 DROPS UP TO 3-4 TIMES A DAY)
     Route: 045
     Dates: start: 20230331, end: 20230420
  15. ATROVENT [Concomitant]
     Active Substance: IPRATROPIUM BROMIDE
     Dosage: 0.25 MILLIGRAM PER MILLILITRE, QD (0.25 MG (MORNING, EVENING))
     Dates: start: 20230406, end: 20230420
  16. FENOTEROL HYDROBROMIDE\IPRATROPIUM BROMIDE [Concomitant]
     Active Substance: FENOTEROL HYDROBROMIDE\IPRATROPIUM BROMIDE
     Indication: Product used for unknown indication
     Dosage: UNK (8 DROPS X 3-4 TIMES/ DAY)
     Route: 065
  17. COLISTIN [Concomitant]
     Active Substance: COLISTIN
     Indication: Product used for unknown indication
     Dosage: 1 MILLION X 2 TIMES/ DAY FOR 28 DAYS
  18. COLISTIN [Concomitant]
     Active Substance: COLISTIN
     Dosage: 1 DOSAGE FORM, QD (MORNING, EVENING)
     Dates: start: 20230413, end: 20230415
  19. SODIUM CITRATE\SODIUM LAURYL SULFOACETATE\SORBITOL [Concomitant]
     Active Substance: SODIUM CITRATE\SODIUM LAURYL SULFOACETATE\SORBITOL
     Indication: Product used for unknown indication
     Route: 065
  20. CAPTOPRIL [Concomitant]
     Active Substance: CAPTOPRIL
     Indication: Product used for unknown indication
     Dosage: 2.5 MG, QD (MORNING, EVENING)
     Route: 048
     Dates: start: 20230406, end: 20230412

REACTIONS (33)
  - Sinus tachycardia [Recovered/Resolved]
  - Myocarditis [Recovering/Resolving]
  - Tachyarrhythmia [Recovered/Resolved]
  - Bradyarrhythmia [Recovering/Resolving]
  - Dyspnoea [Recovering/Resolving]
  - Troponin I increased [Recovered/Resolved]
  - Muscle spasticity [Recovering/Resolving]
  - Pneumonia [Recovered/Resolved]
  - Ventricular extrasystoles [Recovering/Resolving]
  - Prothrombin level increased [Recovered/Resolved]
  - Salivary hypersecretion [Recovered/Resolved]
  - Tachycardia [Unknown]
  - Wheezing [Recovered/Resolved]
  - Body temperature increased [Recovered/Resolved]
  - Alanine aminotransferase increased [Recovered/Resolved]
  - Aspartate aminotransferase increased [Recovered/Resolved]
  - Dysphagia [Recovering/Resolving]
  - Astigmatism [Not Recovered/Not Resolved]
  - Hypermetropia [Unknown]
  - Obesity [Not Recovered/Not Resolved]
  - Constipation [Unknown]
  - Respiratory tract infection viral [Recovered/Resolved]
  - Bradycardia [Unknown]
  - Muscle strength abnormal [Unknown]
  - Hypotonia [Unknown]
  - Tremor [Unknown]
  - COVID-19 [Recovered/Resolved]
  - Gallbladder disorder [Unknown]
  - Weight increased [Unknown]
  - Adenoidal hypertrophy [Not Recovered/Not Resolved]
  - Blood creatine phosphokinase increased [Unknown]
  - Troponin I increased [Not Recovered/Not Resolved]
  - Sinus tachycardia [Not Recovered/Not Resolved]

NARRATIVE: CASE EVENT DATE: 20220511
